FAERS Safety Report 6614284-2 (Version None)
Quarter: 2010Q1

REPORT INFORMATION
  Report Type: 
  Country: None (occurrence: None)
  Receive Date: 20100303
  Receipt Date: 20100303
  Transmission Date: 20100710
  Serious: Yes (Hospitalization)
  Sender: FDA-Public Use
  Company Number: None

PATIENT
  Age: 26 Year
  Sex: Female
  Weight: 86.1834 kg

DRUGS (1)
  1. YAZ [Suspect]

REACTIONS (4)
  - CHEST PAIN [None]
  - COAGULATION TEST ABNORMAL [None]
  - GALLBLADDER DISORDER [None]
  - MUSCULAR WEAKNESS [None]
